FAERS Safety Report 10452699 (Version 1)
Quarter: 2014Q3

REPORT INFORMATION
  Report Type: Spontaneous
  Country: US (occurrence: None)
  Receive Date: 20140912
  Receipt Date: 20140912
  Transmission Date: 20150326
  Serious: Yes (Hospitalization)
  Sender: FDA-Public Use
  Company Number: None

PATIENT
  Age: 63 Year
  Sex: Female
  Weight: 71.7 kg

DRUGS (1)
  1. CISPLATIN. [Suspect]
     Active Substance: CISPLATIN

REACTIONS (11)
  - Diarrhoea [None]
  - Chest pain [None]
  - Abdominal pain [None]
  - Vomiting [None]
  - Hypocalcaemia [None]
  - Headache [None]
  - Chills [None]
  - Muscle spasms [None]
  - Dyspnoea [None]
  - Pyrexia [None]
  - Hyperhidrosis [None]

NARRATIVE: CASE EVENT DATE: 20140905
